FAERS Safety Report 7771552-9 (Version None)
Quarter: 2011Q3

REPORT INFORMATION
  Report Type: 
  Country: None (occurrence: None)
  Receive Date: 20110922
  Receipt Date: 20100517
  Transmission Date: 20111222
  Serious: Yes (Hospitalization, Other)
  Sender: FDA-Public Use
  Company Number: US-ASTRAZENECA-2008UW22418

PATIENT
  Sex: Male

DRUGS (5)
  1. SEROQUEL [Suspect]
     Route: 048
     Dates: start: 20060604
  2. RISPERDAL [Concomitant]
     Route: 048
     Dates: start: 20060604
  3. NEXIUM [Concomitant]
     Dates: start: 20061231
  4. PROLIXIN [Concomitant]
     Dates: start: 20060604
  5. CLONIDINE [Concomitant]
     Route: 048
     Dates: start: 20060604

REACTIONS (2)
  - SUICIDE ATTEMPT [None]
  - OVERDOSE [None]
